FAERS Safety Report 5304999-0 (Version None)
Quarter: 2007Q2

REPORT INFORMATION
  Report Type: 
  Country: None (occurrence: None)
  Receive Date: 20070416
  Receipt Date: 20070409
  Transmission Date: 20071010
  Serious: Yes (Disabling, Other)
  Sender: FDA-Public Use
  Company Number: 012098

PATIENT
  Age: 62 Year
  Sex: Female
  Weight: 81.6 kg

DRUGS (5)
  1. ETHAMBUTOL HYDROCHLORIDE [Suspect]
     Indication: TUBERCULOSIS
     Dosage: 5 TABLET, QD, ORAL, 3 TABLET, QD, ORAL
     Route: 048
     Dates: start: 20060907, end: 20061106
  2. ETHAMBUTOL HYDROCHLORIDE [Suspect]
     Indication: TUBERCULOSIS
     Dosage: 5 TABLET, QD, ORAL, 3 TABLET, QD, ORAL
     Route: 048
     Dates: start: 20061107, end: 20061223
  3. RIFAMPICIN [Concomitant]
  4. METFORMIN HCL [Concomitant]
  5. PLAQUENIL [Concomitant]

REACTIONS (10)
  - BLINDNESS [None]
  - COLOUR BLINDNESS [None]
  - DIZZINESS [None]
  - HEADACHE [None]
  - MYOPATHY TOXIC [None]
  - OPTIC ATROPHY [None]
  - OPTIC NERVE DISORDER [None]
  - OPTIC NEUROPATHY [None]
  - VISUAL FIELD DEFECT [None]
  - XANTHOPSIA [None]
